FAERS Safety Report 5168469-5 (Version None)
Quarter: 2006Q4

REPORT INFORMATION
  Report Type: 
  Country: None (occurrence: None)
  Receive Date: 20061208
  Receipt Date: 20061129
  Transmission Date: 20070319
  Serious: Yes (Other)
  Sender: FDA-Public Use
  Company Number: FR-ROCHE-473202

PATIENT
  Sex: Female

DRUGS (5)
  1. CELLCEPT [Suspect]
     Route: 048
  2. IMUREL [Suspect]
     Indication: DRUG USE FOR UNKNOWN INDICATION
     Route: 048
  3. DIASTABOL [Suspect]
     Indication: DIABETES MELLITUS
     Route: 048
  4. TRIATEC [Suspect]
     Indication: HYPERTENSION
     Route: 048
  5. DIAMICRON [Suspect]
     Indication: DIABETES MELLITUS
     Route: 048

REACTIONS (2)
  - ABORTION SPONTANEOUS [None]
  - DRUG EXPOSURE DURING PREGNANCY [None]
